FAERS Safety Report 8674942 (Version 14)
Quarter: 2014Q4

REPORT INFORMATION
  Report Type: Spontaneous
  Country: US (occurrence: US)
  Receive Date: 20120720
  Receipt Date: 20141104
  Transmission Date: 20150529
  Serious: Yes (Life-Threatening, Hospitalization, Congenital Anomaly, Other)
  Sender: FDA-Public Use
  Company Number: US-PFIZER INC-2012173668

PATIENT
  Sex: Female
  Weight: 2.6 kg

DRUGS (5)
  1. CHLORPROMAZINE [Concomitant]
     Active Substance: CHLORPROMAZINE
     Dosage: 10 MG, UNK
     Route: 064
     Dates: start: 20010819
  2. ZOLOFT [Suspect]
     Active Substance: SERTRALINE HYDROCHLORIDE
     Dosage: 50 MG, 1X/DAY
     Route: 064
     Dates: start: 20000501
  3. NEXIUM [Concomitant]
     Active Substance: ESOMEPRAZOLE MAGNESIUM
     Dosage: 40 MG, UNK
     Route: 064
     Dates: start: 20020111
  4. ZOFRAN [Concomitant]
     Active Substance: ONDANSETRON HYDROCHLORIDE
     Indication: VOMITING
     Dosage: 4 MG, EVERY 6 - 8 HOURS AS NEEDED
     Route: 064
     Dates: start: 20010816
  5. PRENATAL OPTIMA ADVANCE [Concomitant]
     Dosage: UNK
     Route: 064
     Dates: start: 20011218

REACTIONS (6)
  - Congenital hydrocephalus [Not Recovered/Not Resolved]
  - Learning disorder [Unknown]
  - Premature baby [Unknown]
  - Developmental delay [Unknown]
  - Maternal exposure timing unspecified [Not Recovered/Not Resolved]
  - Spina bifida [Not Recovered/Not Resolved]

NARRATIVE: CASE EVENT DATE: 20020312
